FAERS Safety Report 13716670 (Version 5)
Quarter: 2018Q1

REPORT INFORMATION
  Report Type: Report from Study
  Country: US (occurrence: US)
  Receive Date: 20170705
  Receipt Date: 20180110
  Transmission Date: 20180508
  Serious: Yes (Hospitalization)
  Sender: FDA-Public Use
  Company Number: US-ACTELION-A-US2017-156183

PATIENT
  Age: 33 Year
  Sex: Female
  Weight: 63.95 kg

DRUGS (3)
  1. VELETRI [Suspect]
     Active Substance: EPOPROSTENOL
     Indication: PULMONARY ARTERIAL HYPERTENSION
     Dosage: 21 NG/KG, PER MIN
     Route: 042
  2. PLAQUINOL [Suspect]
     Active Substance: HYDROXYCHLOROQUINE SULFATE
     Indication: PRODUCT USED FOR UNKNOWN INDICATION
     Route: 065
  3. ADCIRCA [Concomitant]
     Active Substance: TADALAFIL

REACTIONS (9)
  - Dyspnoea exertional [Unknown]
  - Vomiting [Recovered/Resolved]
  - Diarrhoea [Recovered/Resolved]
  - Catheter site pruritus [Unknown]
  - Malaise [Recovered/Resolved]
  - Blood potassium decreased [Unknown]
  - Rash [Unknown]
  - Pyrexia [Recovered/Resolved]
  - Catheter site inflammation [Unknown]

NARRATIVE: CASE EVENT DATE: 201710
